FAERS Safety Report 18418995 (Version 4)
Quarter: 2020Q4

REPORT INFORMATION
  Report Type: Report from Study
  Country: CA (occurrence: CA)
  Receive Date: 20201023
  Receipt Date: 20201231
  Transmission Date: 20210114
  Serious: Yes (Death, Hospitalization, Other)
  Sender: FDA-Public Use
  Company Number: NVSC2020CA182813

PATIENT
  Age: 83 Year
  Sex: Male

DRUGS (3)
  1. SANDOSTATIN LAR DEPOT [Suspect]
     Active Substance: OCTREOTIDE ACETATE
  2. SANDOSTATIN LAR DEPOT [Suspect]
     Active Substance: OCTREOTIDE ACETATE
     Indication: CARCINOID TUMOUR
     Dosage: 30 MG, Q4W
     Route: 030
     Dates: start: 20200526, end: 20200915
  3. SANDOSTATIN LAR DEPOT [Suspect]
     Active Substance: OCTREOTIDE ACETATE

REACTIONS (11)
  - Headache [Recovering/Resolving]
  - Carcinoid tumour [Unknown]
  - Infection [Unknown]
  - Intentional self-injury [Unknown]
  - Depression [Recovering/Resolving]
  - Malignant neoplasm progression [Unknown]
  - Blood pressure increased [Unknown]
  - Death [Fatal]
  - Blood pressure systolic increased [Unknown]
  - Micturition urgency [Recovering/Resolving]
  - Red blood cells urine [Recovered/Resolved]

NARRATIVE: CASE EVENT DATE: 2020
